FAERS Safety Report 5848908-4 (Version None)
Quarter: 2008Q3

REPORT INFORMATION
  Report Type: 
  Country: None (occurrence: None)
  Receive Date: 20080818
  Receipt Date: 20080806
  Transmission Date: 20090109
  Serious: Yes (Other)
  Sender: FDA-Public Use
  Company Number: JP-PFIZER INC-2008067528

PATIENT
  Sex: Female

DRUGS (3)
  1. CAMPTOSAR [Suspect]
     Dates: start: 20080804, end: 20080804
  2. CALCIUM FOLINATE [Suspect]
     Dates: start: 20080804, end: 20080804
  3. FLUOROURACIL [Suspect]
     Dates: start: 20080804, end: 20080804

REACTIONS (2)
  - DEPRESSED LEVEL OF CONSCIOUSNESS [None]
  - VISUAL IMPAIRMENT [None]
